FAERS Safety Report 4394912-5 (Version None)
Quarter: 2004Q3

REPORT INFORMATION
  Report Type: 
  Country: None (occurrence: None)
  Receive Date: 20040712
  Receipt Date: 20040616
  Transmission Date: 20050211
  Serious: Yes (Hospitalization)
  Sender: FDA-Public Use
  Company Number: US-GLAXOSMITHKLINE-A0514884A

PATIENT
  Age: 29 Year
  Sex: Male
  Weight: 72.7 kg

DRUGS (2)
  1. WELLBUTRIN [Suspect]
     Indication: DEPRESSION
     Dosage: 300MG PER DAY
     Route: 048
     Dates: start: 20040521, end: 20040603
  2. ULTRAM [Suspect]
     Indication: WRIST FRACTURE
     Dosage: 50MG TWICE PER DAY
     Route: 048
     Dates: start: 20040515, end: 20040603

REACTIONS (7)
  - BACK PAIN [None]
  - CHEST PAIN [None]
  - FEELING ABNORMAL [None]
  - FEELING JITTERY [None]
  - GRAND MAL CONVULSION [None]
  - HEADACHE [None]
  - NAUSEA [None]
